FAERS Safety Report 7933846-3 (Version None)
Quarter: 2011Q4

REPORT INFORMATION
  Report Type: 
  Country: None (occurrence: None)
  Receive Date: 20111122
  Receipt Date: 20111107
  Transmission Date: 20120403
  Serious: Yes (Hospitalization)
  Sender: FDA-Public Use
  Company Number: US-ROCHE-1013489

PATIENT

DRUGS (3)
  1. TIPIFARNIB [Suspect]
     Indication: NEOPLASM MALIGNANT
     Dosage: FREQUENCY: Q12HR FOR 3 WEEKS Q4W.
     Route: 048
     Dates: start: 20010321
  2. HERCEPTIN [Suspect]
     Indication: NEOPLASM MALIGNANT
     Dosage: LOADING DOSE.
     Dates: start: 20010321, end: 20010321
  3. HERCEPTIN [Suspect]
     Dosage: MAINTENANCE DOSE

REACTIONS (1)
  - MEMORY IMPAIRMENT [None]
